FAERS Safety Report 11219872 (Version 1)
Quarter: 2015Q2

REPORT INFORMATION
  Report Type: Spontaneous
  Country: JP (occurrence: None)
  Receive Date: 20150624
  Receipt Date: 20150624
  Transmission Date: 20150821
  Serious: Yes (Other)
  Sender: FDA-Public Use
  Company Number: JP2015JPN084689

PATIENT
  Age: 67 Year

DRUGS (2)
  1. HEPSERA [Suspect]
     Active Substance: ADEFOVIR DIPIVOXIL
     Route: 048
  2. ZEFIX [Suspect]
     Active Substance: LAMIVUDINE
     Route: 048

REACTIONS (2)
  - Blood phosphorus decreased [None]
  - Fanconi syndrome [None]
